FAERS Safety Report 23861288 (Version 3)
Quarter: 2024Q3

REPORT INFORMATION
  Report Type: Spontaneous
  Country: JP (occurrence: JP)
  Receive Date: 20240516
  Receipt Date: 20240713
  Transmission Date: 20241017
  Serious: Yes (Hospitalization)
  Sender: ABBVIE
  Company Number: JP-ABBVIE-5761187

PATIENT
  Age: 58 Year
  Sex: Female
  Weight: 102 kg

DRUGS (10)
  1. RINVOQ [Suspect]
     Active Substance: UPADACITINIB
     Indication: Rheumatoid arthritis
     Dosage: FORM STRENGTH: 15 MILLIGRAM
     Route: 048
     Dates: start: 20231215
  2. RINVOQ [Suspect]
     Active Substance: UPADACITINIB
     Indication: Rheumatoid arthritis
     Dosage: FORM STRENGTH: 7.5 MILLIGRAM
     Route: 048
     Dates: start: 20230407, end: 20231130
  3. URSODIOL [Concomitant]
     Active Substance: URSODIOL
     Indication: Hepatic steatosis
     Dosage: TIME INTERVAL: 0.33333333 DAYS: 150 MILLIGRAM
     Route: 048
     Dates: start: 20130910
  4. CISPLATIN [Concomitant]
     Active Substance: CISPLATIN
     Indication: Cervix carcinoma stage II
     Dates: start: 20231220
  5. TRAMADOL HYDROCHLORIDE AND ACETAMINOPHEN [Concomitant]
     Active Substance: ACETAMINOPHEN\TRAMADOL HYDROCHLORIDE
     Indication: Pain
     Route: 048
     Dates: start: 20201029
  6. METHOTREXATE [Concomitant]
     Active Substance: METHOTREXATE
     Indication: Rheumatoid arthritis
     Dosage: 2 MG/WEEK
     Route: 048
     Dates: start: 20220524, end: 20231130
  7. VONOPRAZAN FUMARATE [Concomitant]
     Active Substance: VONOPRAZAN FUMARATE
     Indication: Gastrooesophageal reflux disease
     Dosage: 10 MILLIGRAM
     Route: 048
     Dates: start: 20190829, end: 20231130
  8. ROSUVASTATIN CALCIUM [Concomitant]
     Active Substance: ROSUVASTATIN CALCIUM
     Indication: Hypercholesterolaemia
     Dosage: 2.5 MILLIGRAM
     Route: 048
     Dates: start: 20120427, end: 20231130
  9. OLUMIANT [Suspect]
     Active Substance: BARICITINIB
     Indication: Rheumatoid arthritis
     Dosage: 2 MILLIGRAM
     Route: 048
     Dates: start: 20210617
  10. OLUMIANT [Suspect]
     Active Substance: BARICITINIB
     Indication: Rheumatoid arthritis
     Dosage: 4 MILLIGRAM
     Route: 048
     Dates: start: 20220209, end: 20230406

REACTIONS (1)
  - Cervix carcinoma stage II [Recovering/Resolving]

NARRATIVE: CASE EVENT DATE: 20231025
